FAERS Safety Report 9168592 (Version 1)
Quarter: 2013Q1

REPORT INFORMATION
  Report Type: Spontaneous
  Country: DE (occurrence: DE)
  Receive Date: 20130318
  Receipt Date: 20130318
  Transmission Date: 20140127
  Serious: Yes (Death)
  Sender: FDA-Public Use
  Company Number: DE-ELI_LILLY_AND_COMPANY-DE201303004136

PATIENT
  Age: 57 Year
  Sex: Female
  Weight: 72 kg

DRUGS (5)
  1. GEMZAR [Suspect]
     Indication: PANCREATIC CARCINOMA
     Dosage: 1000 MG/M2, UNKNOWN
     Route: 042
     Dates: start: 20120906, end: 201302
  2. KREON [Concomitant]
     Dosage: 30000 IU, QD
     Route: 048
  3. BISOPROLOL [Concomitant]
     Dosage: 5 MG, QD
     Route: 048
  4. TAZOBAC [Concomitant]
     Dosage: 13.5 G, QD
     Route: 042
     Dates: start: 20130221, end: 20130224
  5. ROCEPHIN [Concomitant]
     Dosage: 2 G, QD
     Route: 042
     Dates: start: 20130219, end: 20130221

REACTIONS (5)
  - Cardiac failure acute [Fatal]
  - Haemolysis [Fatal]
  - Microangiopathic haemolytic anaemia [Fatal]
  - Renal failure acute [Fatal]
  - Thrombocytopenia [Fatal]
